FAERS Safety Report 8479788-9 (Version None)
Quarter: 2012Q2

REPORT INFORMATION
  Report Type: 
  Country: None (occurrence: None)
  Receive Date: 20120629
  Receipt Date: 20120619
  Transmission Date: 20120825
  Serious: Yes (Other)
  Sender: FDA-Public Use
  Company Number: CZ-ABBOTT-12P-217-0916432-00

PATIENT
  Age: 51 Year
  Sex: Female
  Weight: 73 kg

DRUGS (11)
  1. HUMIRA [Suspect]
     Indication: SPONDYLITIS
     Route: 058
     Dates: start: 20100906
  2. VOLTAREN [Concomitant]
     Indication: SPONDYLITIS
     Dates: start: 20100101
  3. KETOPROFEN [Concomitant]
     Indication: SPONDYLITIS
     Dates: start: 20100101, end: 20100501
  4. KETOPROFEN [Concomitant]
     Dates: start: 20100601
  5. TRALGIT [Concomitant]
     Indication: SPONDYLITIS
     Dates: start: 20091201
  6. SULFASALAZIN EN [Concomitant]
     Indication: SPONDYLITIS
     Dates: start: 20100603
  7. SULFASALAZIN EN [Concomitant]
     Dates: start: 20080422, end: 20100602
  8. REMOOD [Concomitant]
     Indication: DEPRESSION
     Dates: start: 20090101
  9. OMEPRAZOLE [Concomitant]
     Indication: DYSPEPSIA
     Dates: start: 20061101
  10. HUMIRA [Suspect]
     Route: 058
     Dates: end: 20120305
  11. METOPROLOL TARTRATE [Concomitant]
     Indication: HYPERTENSION
     Dates: start: 20090101

REACTIONS (1)
  - BENIGN OVARIAN TUMOUR [None]
